FAERS Safety Report 21350744 (Version 1)
Quarter: 2022Q3

REPORT INFORMATION
  Report Type: Spontaneous
  Country: US (occurrence: None)
  Receive Date: 20220919
  Receipt Date: 20220919
  Transmission Date: 20221027
  Serious: Yes (Other)
  Sender: FDA-Public Use
  Company Number: None

PATIENT
  Age: 69 Year
  Sex: Female
  Weight: 76.95 kg

DRUGS (1)
  1. OZEMPIC [Suspect]
     Active Substance: SEMAGLUTIDE
     Indication: Glycosylated haemoglobin
     Dosage: OTHER QUANTITY : 1 INJECTION(S)?OTHER FREQUENCY : 1 INJECTION/WEEK?
     Route: 058
     Dates: start: 20220222

REACTIONS (1)
  - Alopecia [None]

NARRATIVE: CASE EVENT DATE: 20220802
